FAERS Safety Report 19394044 (Version 1)
Quarter: 2021Q2

REPORT INFORMATION
  Report Type: Spontaneous
  Country: IR (occurrence: IR)
  Receive Date: 20210609
  Receipt Date: 20210609
  Transmission Date: 20210717
  Serious: Yes (Hospitalization, Other)
  Sender: FDA-Public Use
  Company Number: IR-LUPIN PHARMACEUTICALS INC.-2021-08948

PATIENT
  Age: 53 Year
  Sex: Male

DRUGS (17)
  1. HYDROXYCHLOROQUINE [Suspect]
     Active Substance: HYDROXYCHLOROQUINE
     Indication: COVID-19 PNEUMONIA
     Dosage: 400 MILLIGRAM, 400 MG STAT
     Route: 065
     Dates: start: 202003
  2. VANCOMYCIN [Suspect]
     Active Substance: VANCOMYCIN
     Indication: COVID-19 PNEUMONIA
     Dosage: 1000 MILLIGRAM, 1000 MG STAT, 500 MG EVERY 48 H
     Route: 065
     Dates: start: 202003
  3. IMMUNOGLOBULIN (IV IMMUNE GLOBULIN) [Suspect]
     Active Substance: HUMAN IMMUNOGLOBULIN G
     Indication: COVID-19 PNEUMONIA
     Dosage: UNK
     Route: 042
     Dates: start: 202003
  4. CICLOSPORIN [Interacting]
     Active Substance: CYCLOSPORINE
     Dosage: 50 MILLIGRAM
     Route: 048
     Dates: start: 202003
  5. MYCOPHENOLATE MOFETIL. [Concomitant]
     Active Substance: MYCOPHENOLATE MOFETIL
     Indication: IMMUNOSUPPRESSANT DRUG THERAPY
     Dosage: 1000 MILLIGRAM, BID
     Route: 065
     Dates: end: 202003
  6. OSELTAMIVIR [Concomitant]
     Active Substance: OSELTAMIVIR
     Indication: PRODUCT USED FOR UNKNOWN INDICATION
     Dosage: 75 MILLIGRAM, QOD,EVERY OTHER DAY FROM SEVEN DAYS BEFORE HIS ADMISSION
     Route: 065
     Dates: start: 202003
  7. CICLOSPORIN [Interacting]
     Active Substance: CYCLOSPORINE
     Indication: IMMUNOSUPPRESSANT DRUG THERAPY
     Dosage: 75 MILLIGRAM, BID
     Route: 048
  8. METRONIDAZOLE. [Concomitant]
     Active Substance: METRONIDAZOLE
     Indication: DIARRHOEA
     Dosage: 500 MILLIGRAM, TID
     Route: 065
  9. VANCOMYCIN [Suspect]
     Active Substance: VANCOMYCIN
     Dosage: 500 MILLIGRAM
     Route: 065
     Dates: start: 202003
  10. CICLOSPORIN [Interacting]
     Active Substance: CYCLOSPORINE
     Dosage: 25 MILLIGRAM, BID
     Route: 048
     Dates: start: 202003
  11. PREDNISOLONE. [Concomitant]
     Active Substance: PREDNISOLONE
     Indication: IMMUNOSUPPRESSANT DRUG THERAPY
     Dosage: 5 MILLIGRAM, QD
     Route: 065
  12. VANCOMYCIN [Suspect]
     Active Substance: VANCOMYCIN
     Dosage: 500 MILLIGRAM
     Route: 065
     Dates: start: 202003
  13. MEROPENEM. [Suspect]
     Active Substance: MEROPENEM
     Indication: COVID-19 PNEUMONIA
     Dosage: 500 MILLIGRAM, BID
     Route: 065
     Dates: start: 202003
  14. LOPINAVIR/RITONAVIR [Suspect]
     Active Substance: LOPINAVIR\RITONAVIR
     Indication: COVID-19 PNEUMONIA
     Dosage: UNK,UNK, LOPINAVIR 400MG/RITONAVIR 100MG TWICE DAILY FROM FOUR DAYS BEFORE HIS ADMISSION BID
     Route: 065
     Dates: start: 202003
  15. HYDROCORTISONE. [Concomitant]
     Active Substance: HYDROCORTISONE
     Indication: IMMUNOSUPPRESSANT DRUG THERAPY
     Dosage: 50 MILLIGRAM, TID
     Route: 065
  16. DEXTROMETHORPHAN [Concomitant]
     Active Substance: DEXTROMETHORPHAN
     Indication: PRODUCT USED FOR UNKNOWN INDICATION
     Dosage: 15 MILLIGRAM, TID
     Route: 065
  17. CICLOSPORIN [Interacting]
     Active Substance: CYCLOSPORINE
     Dosage: 25 MILLIGRAM, BID
     Route: 048
     Dates: start: 2020

REACTIONS (2)
  - Off label use [Unknown]
  - Drug interaction [Unknown]

NARRATIVE: CASE EVENT DATE: 202003
